FAERS Safety Report 9416454 (Version 1)
Quarter: 2013Q3

REPORT INFORMATION
  Report Type: Spontaneous
  Country: US (occurrence: None)
  Receive Date: 20130723
  Receipt Date: 20130723
  Transmission Date: 20140515
  Serious: Yes (Other)
  Sender: FDA-Public Use
  Company Number: None

PATIENT
  Age: 60 Year
  Sex: Female

DRUGS (1)
  1. NEUPOGEN [Suspect]
     Indication: NEUTROPENIA
     Dosage: 5XWEEK
     Route: 058
     Dates: start: 20120619

REACTIONS (5)
  - Visual impairment [None]
  - Visual impairment [None]
  - Impaired driving ability [None]
  - Visual acuity reduced [None]
  - Vision blurred [None]
